FAERS Safety Report 9898860 (Version 2)
Quarter: 2014Q1

REPORT INFORMATION
  Report Type: Spontaneous
  Country: US (occurrence: US)
  Receive Date: 20140214
  Receipt Date: 20140214
  Transmission Date: 20141002
  Serious: Yes (Hospitalization)
  Sender: FDA-Public Use
  Company Number: US-B.I. PHARMACEUTICALS,INC./RIDGEFIELD-2013-BI-37671BP

PATIENT
  Age: 63 Year
  Sex: Female
  Weight: 108.86 kg

DRUGS (14)
  1. PRADAXA [Suspect]
     Indication: ANTICOAGULANT THERAPY
     Dosage: 300 MG
     Dates: start: 20101126, end: 20101214
  2. PRADAXA [Suspect]
     Indication: ATRIAL FIBRILLATION
  3. ASPIRIN [Concomitant]
  4. COREG [Concomitant]
  5. LISINOPRIL [Concomitant]
  6. NORVASC [Concomitant]
  7. OS-CAL [Concomitant]
  8. CLONAZEPAM [Concomitant]
  9. DULOXETINE [Concomitant]
  10. LASIX [Concomitant]
  11. LANTUS [Concomitant]
     Dosage: 20 U
  12. SEROQUEL [Concomitant]
  13. SIMVASTATIN [Concomitant]
  14. DETROL LA [Concomitant]

REACTIONS (3)
  - Gastrointestinal haemorrhage [Unknown]
  - Renal haemorrhage [Unknown]
  - Pulmonary haemorrhage [Unknown]
